FAERS Safety Report 6674353-8 (Version None)
Quarter: 2010Q2

REPORT INFORMATION
  Report Type: 
  Country: None (occurrence: None)
  Receive Date: 20100409
  Receipt Date: 20100331
  Transmission Date: 20101027
  Serious: Yes (Disabling)
  Sender: FDA-Public Use
  Company Number: US-ABBOTT-10P-163-0636074-00

PATIENT
  Sex: Male
  Weight: 79.45 kg

DRUGS (1)
  1. NIASPAN [Suspect]
     Indication: BLOOD CHOLESTEROL INCREASED
     Dosage: 1 TABLET AT BEDTIME
     Dates: start: 20080101, end: 20080101

REACTIONS (5)
  - ABASIA [None]
  - APHASIA [None]
  - CEREBROVASCULAR ACCIDENT [None]
  - ERYTHEMA [None]
  - FLUSHING [None]
